FAERS Safety Report 10411041 (Version 1)
Quarter: 2014Q1

REPORT INFORMATION
  Report Type: Spontaneous
  Country: US (occurrence: None)
  Receive Date: 20140318
  Receipt Date: 20140318
  Transmission Date: 20141002
  Serious: Yes (Other)
  Sender: FDA-Public Use
  Company Number: US-JNJFOC-20130517167

PATIENT
  Age: 31 Year
  Sex: Male
  Weight: 74.39 kg

DRUGS (1)
  1. ROGAINE FOR MEN EXTRA STRENGTH FOAM UNSCENTED [Suspect]
     Indication: ALOPECIA
     Route: 061
     Dates: start: 20130502, end: 20130522

REACTIONS (1)
  - Weight increased [None]
